FAERS Safety Report 20090470 (Version 1)
Quarter: 2021Q4

REPORT INFORMATION
  Report Type: Report from Study
  Country: US (occurrence: US)
  Receive Date: 20211119
  Receipt Date: 20211119
  Transmission Date: 20220303
  Serious: Yes (Hospitalization, Disabling, Other)
  Sender: FDA-Public Use
  Company Number: US-SA-2017SA080688

PATIENT
  Age: 63 Year
  Sex: Female

DRUGS (6)
  1. TERIFLUNOMIDE [Suspect]
     Active Substance: TERIFLUNOMIDE
     Indication: Multiple sclerosis
     Dosage: 7 MG, QD
     Route: 048
     Dates: start: 20170219, end: 20170317
  2. TERIFLUNOMIDE [Suspect]
     Active Substance: TERIFLUNOMIDE
     Dosage: 14 MG, QD
     Route: 048
     Dates: start: 20170318, end: 20190201
  3. MAYZENT [Suspect]
     Active Substance: SIPONIMOD
     Indication: Secondary progressive multiple sclerosis
     Dosage: UNK
     Dates: end: 202104
  4. HYDROCHLOROTHIAZIDE\TRIAMTERENE [Concomitant]
     Active Substance: HYDROCHLOROTHIAZIDE\TRIAMTERENE
     Indication: Hypertension
     Dosage: 37 MG, QD
     Route: 048
     Dates: start: 2001
  5. BACLOFEN [Concomitant]
     Active Substance: BACLOFEN
     Indication: Muscle spasms
     Dosage: 10 MG, TID
     Route: 048
     Dates: start: 2015
  6. SYNTHROID [Concomitant]
     Active Substance: LEVOTHYROXINE SODIUM
     Indication: Hypothyroidism
     Dosage: 50 UG, QD
     Route: 048
     Dates: start: 2015

REACTIONS (42)
  - Secondary progressive multiple sclerosis [Recovered/Resolved]
  - Balance disorder [Recovered/Resolved]
  - Dizziness [Recovered/Resolved]
  - Hip arthroplasty [Recovered/Resolved]
  - Joint arthroplasty [Recovered/Resolved]
  - Multiple sclerosis [Unknown]
  - Optic neuritis [Unknown]
  - Urinary retention [Unknown]
  - Pelvic inflammatory disease [Not Recovered/Not Resolved]
  - Red blood cell count decreased [Not Recovered/Not Resolved]
  - Haematocrit decreased [Not Recovered/Not Resolved]
  - Haemoglobin decreased [Unknown]
  - Pruritus [Not Recovered/Not Resolved]
  - Dry skin [Not Recovered/Not Resolved]
  - Hyperhidrosis [Recovered/Resolved]
  - Musculoskeletal discomfort [Not Recovered/Not Resolved]
  - Blood iron decreased [Not Recovered/Not Resolved]
  - Blood urea increased [Not Recovered/Not Resolved]
  - Blood creatinine increased [Not Recovered/Not Resolved]
  - Blood pressure inadequately controlled [Recovering/Resolving]
  - Exposure to SARS-CoV-2 [Recovering/Resolving]
  - Fatigue [Recovering/Resolving]
  - Urinary tract infection [Not Recovered/Not Resolved]
  - Condition aggravated [Not Recovered/Not Resolved]
  - Hypoaesthesia [Unknown]
  - Muscle spasms [Unknown]
  - Memory impairment [Unknown]
  - Arthropathy [Unknown]
  - Cognitive disorder [Unknown]
  - Visual impairment [Unknown]
  - Balance disorder [Unknown]
  - Speech disorder [Unknown]
  - Nasopharyngitis [Recovering/Resolving]
  - Hypogeusia [Recovering/Resolving]
  - Oropharyngeal pain [Recovering/Resolving]
  - Rhinorrhoea [Recovering/Resolving]
  - Alopecia [Recovered/Resolved]
  - Paraesthesia [Unknown]
  - Unevaluable event [Unknown]
  - Alopecia [Not Recovered/Not Resolved]
  - Lymphocyte count decreased [Not Recovered/Not Resolved]
  - Product dose omission issue [Unknown]

NARRATIVE: CASE EVENT DATE: 20170101
